FAERS Safety Report 24200668 (Version 2)
Quarter: 2024Q3

REPORT INFORMATION
  Report Type: Spontaneous
  Country: US (occurrence: US)
  Receive Date: 20240812
  Receipt Date: 20240919
  Transmission Date: 20241016
  Serious: Yes (Hospitalization)
  Sender: ANI
  Company Number: US-ANIPHARMA-2024-US-038861

PATIENT
  Age: 54 Year
  Sex: Female
  Weight: 154.22 kg

DRUGS (31)
  1. CORTICOTROPIN [Suspect]
     Active Substance: CORTICOTROPIN
     Indication: Multiple sclerosis
     Dosage: 80 UNITS DAILY FOR 10 DAYS
     Route: 058
     Dates: start: 20240325
  2. MUPIROCIN [Concomitant]
     Active Substance: MUPIROCIN
  3. JARDIANCE [Concomitant]
     Active Substance: EMPAGLIFLOZIN
  4. OMEPRAZOLE [Concomitant]
     Active Substance: OMEPRAZOLE
  5. BUMETANIDE [Concomitant]
     Active Substance: BUMETANIDE
  6. LEVOTHYROXINE SODIUM [Concomitant]
     Active Substance: LEVOTHYROXINE SODIUM
  7. ROPINIROLE [Concomitant]
     Active Substance: ROPINIROLE
  8. GABAPENTIN [Concomitant]
     Active Substance: GABAPENTIN
  9. FLUOXETINE DR [Concomitant]
  10. BACLOFEN [Concomitant]
     Active Substance: BACLOFEN
  11. NURTEC ODT [Concomitant]
     Active Substance: RIMEGEPANT SULFATE
  12. EPINEPHRINE [Concomitant]
     Active Substance: EPINEPHRINE
  13. ALBUTEROL\IPRATROPIUM [Concomitant]
     Active Substance: ALBUTEROL\IPRATROPIUM
  14. OLANZAPINE [Concomitant]
     Active Substance: OLANZAPINE
  15. MELOXICAM [Concomitant]
     Active Substance: MELOXICAM
  16. VITAMIN D2 [Concomitant]
     Active Substance: ERGOCALCIFEROL
  17. SPIRONOLACTONE [Concomitant]
     Active Substance: SPIRONOLACTONE
  18. BENADRYL [Concomitant]
     Active Substance: DIPHENHYDRAMINE HYDROCHLORIDE
  19. CLARITIN [Concomitant]
     Active Substance: LORATADINE
  20. GAS-X [Concomitant]
     Active Substance: DIMETHICONE
  21. TYLENOL [Concomitant]
     Active Substance: ACETAMINOPHEN
  22. PEPTO-BISMOL [Concomitant]
     Active Substance: BISMUTH SUBSALICYLATE
  23. MAVENCLAD [Concomitant]
     Active Substance: CLADRIBINE
  24. PROMETHAZINE HYDROCHLORIDE [Concomitant]
     Active Substance: PROMETHAZINE HYDROCHLORIDE
  25. RIZATRIPTAN [Concomitant]
     Active Substance: RIZATRIPTAN
  26. BENZONATATE [Concomitant]
     Active Substance: BENZONATATE
  27. CYANOCOBALAMIN [Concomitant]
     Active Substance: CYANOCOBALAMIN
  28. METOLAZONE [Concomitant]
     Active Substance: METOLAZONE
  29. TIZANIDINE HYDROCHLORIDE [Concomitant]
     Active Substance: TIZANIDINE HYDROCHLORIDE
  30. QULIPTA [Concomitant]
     Active Substance: ATOGEPANT
  31. COLLAGENASE SANTYL [Concomitant]
     Active Substance: COLLAGENASE CLOSTRIDIUM HISTOLYTICUM

REACTIONS (7)
  - Inappropriate schedule of product administration [Recovered/Resolved]
  - Weight increased [Not Recovered/Not Resolved]
  - Swelling face [Not Recovered/Not Resolved]
  - Intentional product misuse [Recovered/Resolved]
  - Skin discolouration [Unknown]
  - Swelling [Unknown]
  - Cardiac disorder [Unknown]

NARRATIVE: CASE EVENT DATE: 20240404
